FAERS Safety Report 10958805 (Version 1)
Quarter: 2015Q1

REPORT INFORMATION
  Report Type: Spontaneous
  Country: US (occurrence: US)
  Receive Date: 20150326
  Receipt Date: 20150326
  Transmission Date: 20150721
  Serious: No
  Sender: FDA-Public Use
  Company Number: US-CELGENEUS-USA-2015034054

PATIENT
  Sex: Male

DRUGS (1)
  1. OTEZLA [Suspect]
     Active Substance: APREMILAST
     Indication: PSORIATIC ARTHROPATHY
     Dosage: 60 MILLIGRAM
     Route: 048

REACTIONS (6)
  - Lymphadenopathy [Not Recovered/Not Resolved]
  - Skin abrasion [Recovered/Resolved]
  - Cellulitis [Unknown]
  - Abdominal pain [Unknown]
  - Chest pain [Unknown]
  - Fall [Unknown]

NARRATIVE: CASE EVENT DATE: 2015
